FAERS Safety Report 9960089 (Version 1)
Quarter: 2014Q1

REPORT INFORMATION
  Report Type: Spontaneous
  Country: US (occurrence: US)
  Receive Date: 20140305
  Receipt Date: 20140305
  Transmission Date: 20141002
  Serious: No
  Sender: FDA-Public Use
  Company Number: US-ABBVIE-13P-163-1103173-00

PATIENT
  Age: 54 Year
  Sex: Female
  Weight: 74.91 kg

DRUGS (13)
  1. HUMIRA [Suspect]
     Indication: RHEUMATOID ARTHRITIS
     Dates: start: 20110611, end: 20110611
  2. METHOTREXATE [Concomitant]
     Indication: RHEUMATOID ARTHRITIS
  3. PERCOCET [Concomitant]
     Indication: PAIN
  4. HYDROXYCHLOROQUINE [Concomitant]
     Indication: RHEUMATOID ARTHRITIS
  5. NEUROTIN [Concomitant]
     Indication: NERVE INJURY
  6. LOSARTAN POTASSIUM [Concomitant]
     Indication: BLOOD PRESSURE
  7. LEVOTHYROXINE [Concomitant]
     Indication: THYROID DISORDER
  8. PROTONIX [Concomitant]
     Indication: GASTRIC DISORDER
  9. LIPITOR [Concomitant]
     Indication: BLOOD CHOLESTEROL
  10. SINGULAR [Concomitant]
     Indication: ASTHMA
  11. SPIRIVA [Concomitant]
     Indication: ASTHMA
  12. ADVAIR [Concomitant]
     Indication: ASTHMA
  13. ALBUTEROL [Concomitant]
     Indication: ASTHMA

REACTIONS (4)
  - Hyperhidrosis [Recovered/Resolved]
  - Injection site pain [Recovered/Resolved]
  - Headache [Recovered/Resolved]
  - Nausea [Recovered/Resolved]
